FAERS Safety Report 5658440-9 (Version None)
Quarter: 2008Q1

REPORT INFORMATION
  Report Type: 
  Country: None (occurrence: None)
  Receive Date: 20080310
  Receipt Date: 20070215
  Transmission Date: 20080703
  Serious: No
  Sender: FDA-Public Use
  Company Number: US-BAYER-200710519BCC

PATIENT
  Age: 61 Year
  Sex: Female
  Weight: 57 kg

DRUGS (7)
  1. ALEVE [Suspect]
     Indication: PELVIC INFECTION
     Dosage: TOTAL DAILY DOSE: 880 MG  UNIT DOSE: 220 MG
     Route: 048
     Dates: start: 20070201
  2. ASCORBIC ACID [Concomitant]
  3. GLUCOSAMINE [Concomitant]
  4. CALCIUM [Concomitant]
  5. MAGNESIUM [Concomitant]
  6. CRANACTIN [Concomitant]
  7. HOMOCYSTEINE [Concomitant]

REACTIONS (3)
  - BOWEL MOVEMENT IRREGULARITY [None]
  - CONSTIPATION [None]
  - FAECES HARD [None]
